FAERS Safety Report 9797623 (Version 4)
Quarter: 2014Q1

REPORT INFORMATION
  Report Type: Spontaneous
  Country: US (occurrence: US)
  Receive Date: 20140106
  Receipt Date: 20140117
  Transmission Date: 20141002
  Serious: No
  Sender: FDA-Public Use
  Company Number: US-PFIZER INC-2013355427

PATIENT
  Sex: Female

DRUGS (2)
  1. EFFEXOR XR [Suspect]
     Dosage: 225MG, EVERY DAY (TAKES 3 OF THE 75MG CAPSULES EVERY DAY)
  2. EFFEXOR [Suspect]
     Dosage: UNK

REACTIONS (2)
  - Drug withdrawal syndrome [Unknown]
  - Headache [Not Recovered/Not Resolved]
